FAERS Safety Report 17859713 (Version 1)
Quarter: 2020Q2

REPORT INFORMATION
  Report Type: Spontaneous
  Country: US (occurrence: US)
  Receive Date: 20200604
  Receipt Date: 20200604
  Transmission Date: 20200714
  Serious: No
  Sender: FDA-Public Use
  Company Number: US-PFIZER INC-2020216872

PATIENT
  Age: 65 Year
  Sex: Female
  Weight: 83.46 kg

DRUGS (2)
  1. ALPRAZOLAM. [Suspect]
     Active Substance: ALPRAZOLAM
     Indication: PANIC ATTACK
     Dosage: UNK
     Dates: start: 1992
  2. ALPRAZOLAM. [Suspect]
     Active Substance: ALPRAZOLAM
     Indication: GRIEF REACTION
     Dosage: 4 MG, DAILY(4-1MG TABLETS DAILY DOSE FOR YEARS)

REACTIONS (1)
  - Drug ineffective [Recovering/Resolving]
